FAERS Safety Report 19963465 (Version 2)
Quarter: 2021Q4

REPORT INFORMATION
  Report Type: Spontaneous
  Country: US (occurrence: US)
  Receive Date: 20211018
  Receipt Date: 20211101
  Transmission Date: 20220303
  Serious: Yes (Life-Threatening, Hospitalization, Other)
  Sender: FDA-Public Use
  Company Number: US-ACCORD-243001

PATIENT
  Age: 7 Decade
  Sex: Female

DRUGS (9)
  1. TACROLIMUS [Interacting]
     Active Substance: TACROLIMUS
     Indication: Immunosuppression
  2. EMTRICITABINE\TENOFOVIR DISOPROXIL FUMARATE [Interacting]
     Active Substance: EMTRICITABINE\TENOFOVIR DISOPROXIL FUMARATE
     Indication: Prophylaxis against HIV infection
     Dosage: 200/300 MG DAILY WITHOUT DOSE ADJUSTMENT
  3. CLONIDINE [Concomitant]
     Active Substance: CLONIDINE
  4. QUETIAPINE [Concomitant]
     Active Substance: QUETIAPINE
  5. POTASSIUM [Concomitant]
     Active Substance: POTASSIUM
  6. PRAVASTATIN [Concomitant]
     Active Substance: PRAVASTATIN
  7. OXYMORPHONE [Concomitant]
     Active Substance: OXYMORPHONE
  8. LIDOCAINE [Concomitant]
     Active Substance: LIDOCAINE
  9. MYCOPHENOLIC ACID [Concomitant]
     Active Substance: MYCOPHENOLIC ACID
     Indication: Immunosuppression

REACTIONS (3)
  - Fanconi syndrome [Recovered/Resolved]
  - Drug interaction [Unknown]
  - Nephropathy toxic [Recovered/Resolved]
